FAERS Safety Report 5574686-2 (Version None)
Quarter: 2007Q4

REPORT INFORMATION
  Report Type: 
  Country: None (occurrence: None)
  Receive Date: 20071226
  Receipt Date: 20071226
  Transmission Date: 20080405
  Serious: Yes (Life-Threatening, Disabling, Other)
  Sender: FDA-Public Use
  Company Number: None

PATIENT
  Age: 60 Year
  Sex: Female
  Weight: 58.0604 kg

DRUGS (2)
  1. DILANTIN [Suspect]
     Indication: CONVULSION PROPHYLAXIS
     Dosage: 1 CAPSULE 3 TIMES PER DAY PO OVER 40 YEARS
     Route: 048
  2. DILANTIN [Suspect]
     Indication: CONVULSION PROPHYLAXIS
     Dosage: 1 CAPSULE 3 TIMES PER DAY PO
     Route: 048

REACTIONS (2)
  - CONVULSION [None]
  - PHARMACEUTICAL PRODUCT COMPLAINT [None]
